FAERS Safety Report 7649701 (Version 2)
Quarter: 2012Q4

REPORT INFORMATION
  Report Type: 
  Country: FR (occurrence: FR)
  Receive Date: 20101029
  Receipt Date: 20121218
  Transmission Date: 20130627
  Serious: Yes (Other)
  Sender: FDA-Public Use
  Company Number: FR-MERCK-1010FRA00081

PATIENT
  Age: 35 Year
  Sex: Female

DRUGS (4)
  1. JANUVIA [Suspect]
     Indication: TYPE 1 DIABETES MELLITUS
     Route: 048
     Dates: end: 20091019
  2. COMPETACT [Suspect]
     Indication: TYPE 1 DIABETES MELLITUS
     Route: 048
     Dates: end: 20091019
  3. INSULATARD (INSULIN, ISOPHANE) [Concomitant]
     Indication: TYPE 1 DIABETES MELLITUS
     Dosage: UNK
  4. NOVORAPID [Concomitant]
     Indication: TYPE 1 DIABETES MELLITUS
     Dosage: UNK
     Dates: start: 20091020

REACTIONS (3)
  - Abortion induced [Recovered/Resolved]
  - Exposure during pregnancy [Unknown]
  - Off label use [Unknown]
